FAERS Safety Report 5680005-3 (Version None)
Quarter: 2008Q1

REPORT INFORMATION
  Report Type: 
  Country: None (occurrence: None)
  Receive Date: 20080325
  Receipt Date: 20080325
  Transmission Date: 20080703
  Serious: Yes (Life-Threatening, Hospitalization, Other)
  Sender: FDA-Public Use
  Company Number: None

PATIENT
  Age: 367 Day
  Sex: Female
  Weight: 9.54 kg

DRUGS (1)
  1. AMOXICILLIN [Suspect]
     Dosage: SEE IMAGE
     Route: 048
     Dates: start: 20080303

REACTIONS (4)
  - CARDIO-RESPIRATORY ARREST [None]
  - CYANOSIS [None]
  - FEBRILE CONVULSION [None]
  - GRAND MAL CONVULSION [None]
